FAERS Safety Report 22756036 (Version 5)
Quarter: 2023Q4

REPORT INFORMATION
  Report Type: Spontaneous
  Country: CO (occurrence: CO)
  Receive Date: 20230727
  Receipt Date: 20231011
  Transmission Date: 20240110
  Serious: No
  Sender: FDA-Public Use
  Company Number: CO-PFIZER INC-PV202300125414

PATIENT
  Age: 14 Year
  Sex: Male

DRUGS (1)
  1. GENOTROPIN [Suspect]
     Active Substance: SOMATROPIN
     Dosage: 1.4 MG
     Route: 058
     Dates: start: 202307

REACTIONS (6)
  - Device issue [Unknown]
  - Device breakage [Unknown]
  - Device information output issue [Unknown]
  - Device failure [Unknown]
  - Device physical property issue [Unknown]
  - Drug dose omission by device [Unknown]

NARRATIVE: CASE EVENT DATE: 20230717
